FAERS Safety Report 9337256 (Version 1)
Quarter: 2013Q2

REPORT INFORMATION
  Report Type: Spontaneous
  Country: TH (occurrence: TH)
  Receive Date: 20130607
  Receipt Date: 20130607
  Transmission Date: 20140414
  Serious: Yes (Other)
  Sender: FDA-Public Use
  Company Number: TH-JNJFOC-20130521506

PATIENT
  Sex: Female

DRUGS (2)
  1. DOXORUBICIN [Suspect]
     Indication: BREAST CANCER
     Dosage: FOR 4 CYLES
     Route: 042
  2. CYCLOPHOSPHAMIDE [Suspect]
     Indication: BREAST CANCER
     Dosage: FOR 4 CYLES
     Route: 042

REACTIONS (4)
  - N-terminal prohormone brain natriuretic peptide increased [Unknown]
  - Cardiotoxicity [Unknown]
  - Neutropenia [Unknown]
  - Vomiting [Unknown]
